FAERS Safety Report 6830499-2 (Version None)
Quarter: 2010Q3

REPORT INFORMATION
  Report Type: 
  Country: None (occurrence: None)
  Receive Date: 20100712
  Receipt Date: 20100630
  Transmission Date: 20110219
  Serious: No
  Sender: FDA-Public Use
  Company Number: US-BIOGENIDEC-2010BI022364

PATIENT
  Age: 51 Year
  Sex: Male

DRUGS (1)
  1. AVONEX [Suspect]
     Indication: MULTIPLE SCLEROSIS
     Route: 030

REACTIONS (6)
  - CHILLS [None]
  - HEADACHE [None]
  - HYPERHIDROSIS [None]
  - INJECTION SITE PAIN [None]
  - MUSCLE SPASMS [None]
  - RHINORRHOEA [None]
